FAERS Safety Report 8139945-8 (Version None)
Quarter: 2012Q1

REPORT INFORMATION
  Report Type: 
  Country: None (occurrence: None)
  Receive Date: 20120215
  Receipt Date: 20120214
  Transmission Date: 20120608
  Serious: Yes (Hospitalization)
  Sender: FDA-Public Use
  Company Number: PH-ROCHE-726235

PATIENT
  Sex: Female
  Weight: 52 kg

DRUGS (10)
  1. CARBOPLATIN [Suspect]
     Indication: BREAST CANCER
     Dosage: LAST DOSER: 07 MAY 2010,DOSE LEVEL:6AUC, DOSE FORM : VIAL
     Route: 042
  2. HERCEPTIN [Suspect]
     Indication: BREAST CANCER
     Dosage: LOADING DOSE: 8MG/KG, ONLY ON DAY 1 OF CYCLE 1
     Route: 042
  3. AVASTIN [Suspect]
     Route: 042
  4. FERROUS SULFATE TAB [Concomitant]
  5. VITAMIN B COMPLEX CAP [Concomitant]
  6. DOCETAXEL [Suspect]
     Indication: BREAST CANCER
     Dosage: LAST DOSE 13 APRIL 2010, DOSE LEVEL : 60MG/M2
     Route: 042
  7. AVASTIN [Suspect]
     Indication: BREAST CANCER
     Dosage: TOTAL DOSE:780MG, FORM:VIALS, LAST DOSE PRIOR TO SAE: 20 AUGUST 2010, DOSE ON HOLD
     Route: 042
     Dates: start: 20100119, end: 20100820
  8. HERCEPTIN [Suspect]
     Dosage: MAINTAINANCE DOSE, LAST DOSE PRIOR TO SAE: 20 AUGUST 2010, FORM: VIALS.TOTAL DOSE: 312 MG, ON HOLD.
     Route: 042
     Dates: start: 20100209, end: 20100820
  9. HERCEPTIN [Suspect]
     Route: 042
  10. FOLIC ACID [Concomitant]

REACTIONS (2)
  - VENTRICULAR ARRHYTHMIA [None]
  - HYPERTENSION [None]
